FAERS Safety Report 19221310 (Version 1)
Quarter: 2021Q2

REPORT INFORMATION
  Report Type: Spontaneous
  Country: AU (occurrence: AU)
  Receive Date: 20210506
  Receipt Date: 20210506
  Transmission Date: 20210717
  Serious: Yes (Other)
  Sender: FDA-Public Use
  Company Number: AU-AUROBINDO-AUR-APL-2021-017877

PATIENT
  Age: 57 Year
  Sex: Male

DRUGS (18)
  1. CYCLOPHOSPHAMIDE. [Suspect]
     Active Substance: CYCLOPHOSPHAMIDE
     Indication: CHRONIC LYMPHOCYTIC LEUKAEMIA
     Dosage: TWO CYCLES OF FCR (FLUDARABINE, CYCLOPHOSPHAMIDE AND RITUXIMAB)
     Route: 065
  2. VENETOCLAX. [Suspect]
     Active Substance: VENETOCLAX
     Indication: CHRONIC LYMPHOCYTIC LEUKAEMIA
     Dosage: UNKNOWN
     Route: 048
     Dates: start: 201903
  3. PREDNISOLONE. [Suspect]
     Active Substance: PREDNISOLONE
     Indication: CHRONIC LYMPHOCYTIC LEUKAEMIA
     Dosage: UNKNOWN
     Route: 065
  4. RITUXIMAB. [Suspect]
     Active Substance: RITUXIMAB
     Indication: CHRONIC LYMPHOCYTIC LEUKAEMIA
     Dosage: TWO CYCLES OF RGDP (DEXAMETHASONE, CISPLATIN, GEMCITABINE AND RITUXIMAB)
     Route: 065
  5. DEXAMETHASONE. [Suspect]
     Active Substance: DEXAMETHASONE
     Indication: CHRONIC LYMPHOCYTIC LEUKAEMIA
     Dosage: TWO CYCLES OF RGDP (DEXAMETHASONE, CISPLATIN, GEMCITABINE AND RITUXIMAB)
     Route: 065
  6. GEMCITABINE. [Suspect]
     Active Substance: GEMCITABINE
     Indication: CHRONIC LYMPHOCYTIC LEUKAEMIA
     Dosage: TWO CYCLES OF RGDP (DEXAMETHASONE, CISPLATIN, GEMCITABINE AND RITUXIMAB)
     Route: 065
  7. VINCRISTINE [Suspect]
     Active Substance: VINCRISTINE
     Indication: CHRONIC LYMPHOCYTIC LEUKAEMIA
     Dosage: SIX CYCLES OF RCHP (RITUXIMAB, CYCLOPHOSPHAMIDE, DOXORUBICIN AND VINCRISTINE)
     Route: 065
  8. FLUDARABINE [Suspect]
     Active Substance: FLUDARABINE PHOSPHATE
     Indication: CHRONIC LYMPHOCYTIC LEUKAEMIA
     Dosage: TWO CYCLES OF FCR (FLUDARABINE, CYCLOPHOSPHAMIDE AND RITUXIMAB)
     Route: 065
  9. RITUXIMAB. [Suspect]
     Active Substance: RITUXIMAB
     Dosage: SIX CYCLES OF RCHP (RITUXIMAB, CYCLOPHOSPHAMIDE, DOXORUBICIN AND VINCRISTINE) UNK
     Route: 065
  10. MELPHALAN INJECTION [Suspect]
     Active Substance: MELPHALAN
     Indication: CHRONIC LYMPHOCYTIC LEUKAEMIA
     Dosage: TWO CYCLE OF BEAM (CARMUSTINE, ETOPOSIDE, CYTARABINE AND MELPHALAN)
     Route: 065
  11. CARMUSTINE. [Suspect]
     Active Substance: CARMUSTINE
     Indication: CHRONIC LYMPHOCYTIC LEUKAEMIA
     Dosage: TWO CYCLE OF BEAM (CARMUSTINE, ETOPOSIDE, CYTARABINE AND MELPHALAN)
     Route: 065
  12. CISPLATIN. [Suspect]
     Active Substance: CISPLATIN
     Indication: CHRONIC LYMPHOCYTIC LEUKAEMIA
     Dosage: TWO CYCLES OF RGDP (DEXAMETHASONE, CISPLATIN, GEMCITABINE AND RITUXIMAB)
     Route: 065
  13. CYTARABINE. [Suspect]
     Active Substance: CYTARABINE
     Indication: CHRONIC LYMPHOCYTIC LEUKAEMIA
     Dosage: TWO CYCLE OF BEAM (CARMUSTINE, ETOPOSIDE, CYTARABINE AND MELPHALAN)
     Route: 065
  14. CYCLOPHOSPHAMIDE. [Suspect]
     Active Substance: CYCLOPHOSPHAMIDE
     Dosage: SIX CYCLES OF RCHP (RITUXIMAB, CYCLOPHOSPHAMIDE, DOXORUBICIN AND VINCRISTINE)
     Route: 065
  15. DOXORUBICIN [Suspect]
     Active Substance: DOXORUBICIN
     Indication: CHRONIC LYMPHOCYTIC LEUKAEMIA
     Dosage: SIX CYCLES OF RCHP (RITUXIMAB, CYCLOPHOSPHAMIDE, DOXORUBICIN AND VINCRISTINE)
     Route: 065
  16. ETOPOSIDE. [Suspect]
     Active Substance: ETOPOSIDE
     Indication: CHRONIC LYMPHOCYTIC LEUKAEMIA
     Dosage: TWO CYCLE OF BEAM (CARMUSTINE, ETOPOSIDE, CYTARABINE AND MELPHALAN)
     Route: 065
  17. RITUXIMAB. [Suspect]
     Active Substance: RITUXIMAB
     Dosage: MURANO PROTOCOL (VENETOCLAX AND RITUXIMAB)
     Route: 065
  18. RITUXIMAB. [Suspect]
     Active Substance: RITUXIMAB
     Dosage: TWO CYCLES OF FCR (FLUDARABINE, CYCLOPHOSPHAMIDE AND RITUXIMAB) UNK
     Route: 065

REACTIONS (4)
  - Bone lesion [Recovering/Resolving]
  - Lymphadenopathy [Recovering/Resolving]
  - Drug ineffective [Unknown]
  - Pyrexia [Recovering/Resolving]
